FAERS Safety Report 19680158 (Version 1)
Quarter: 2021Q3

REPORT INFORMATION
  Report Type: Spontaneous
  Country: DE (occurrence: DE)
  Receive Date: 20210810
  Receipt Date: 20210810
  Transmission Date: 20211014
  Serious: Yes (Other)
  Sender: FDA-Public Use
  Company Number: DE-TORRENT-00020874

PATIENT
  Sex: Female

DRUGS (2)
  1. ORFIRIL [Concomitant]
     Active Substance: VALPROATE SODIUM
     Indication: PRODUCT USED FOR UNKNOWN INDICATION
     Dates: start: 2013
  2. LAMOTRIGIN HEUMANN 50 MG TABLETTEN [Suspect]
     Active Substance: LAMOTRIGINE
     Indication: PRODUCT USED FOR UNKNOWN INDICATION
     Dosage: 75 MG/TWICE?A DAY
     Dates: start: 2013

REACTIONS (1)
  - Epilepsy [Not Recovered/Not Resolved]
